FAERS Safety Report 18903273 (Version 1)
Quarter: 2021Q1

REPORT INFORMATION
  Report Type: Spontaneous
  Country: CA (occurrence: CA)
  Receive Date: 20210217
  Receipt Date: 20210217
  Transmission Date: 20210420
  Serious: Yes (Other)
  Sender: FDA-Public Use
  Company Number: CA-BRISTOL-MYERS SQUIBB COMPANY-BMS-2021-013996

PATIENT
  Age: 11 Year
  Sex: Female

DRUGS (5)
  1. IMMUNOGLOBULIN I.V [Suspect]
     Active Substance: HUMAN IMMUNOGLOBULIN G
     Indication: PRODUCT USED FOR UNKNOWN INDICATION
     Dosage: UNK, QMO
     Route: 042
  2. SIROLIMUS. [Suspect]
     Active Substance: SIROLIMUS
     Indication: GENE MUTATION
     Dosage: 1.3 MILLIGRAM, BID
     Route: 065
  3. CEPHALEXIN [CEFALEXIN] [Suspect]
     Active Substance: CEPHALEXIN
     Indication: INFECTION PROPHYLAXIS
     Route: 065
  4. ABATACEPT [Suspect]
     Active Substance: ABATACEPT
     Indication: GENE MUTATION
     Dosage: 20 MILLIGRAM/KILOGRAM
     Route: 065
  5. GANCICLOVIR. [Suspect]
     Active Substance: GANCICLOVIR
     Indication: CYTOMEGALOVIRUS VIRAEMIA
     Route: 065

REACTIONS (6)
  - Hypokalaemia [Unknown]
  - Immune thrombocytopenia [Unknown]
  - Intentional product use issue [Unknown]
  - Neutropenia [Unknown]
  - Bronchiectasis [Unknown]
  - Renal failure [Unknown]
